FAERS Safety Report 8920540 (Version 1)
Quarter: 2012Q4

REPORT INFORMATION
  Report Type: 
  Country: US (occurrence: US)
  Receive Date: 20121122
  Receipt Date: 20121122
  Transmission Date: 20130627
  Serious: Yes (Hospitalization)
  Sender: FDA-Public Use
  Company Number: PHHY2012US105830

PATIENT
  Age: 69 Year
  Sex: Male

DRUGS (7)
  1. ACETYLSALICYLIC ACID [Suspect]
  2. ANTIDEPRESSANTS [Concomitant]
  3. ADVAIR [Concomitant]
  4. NEXIUM [Concomitant]
  5. VYTORIN [Concomitant]
  6. LEVOFLAXIN [Concomitant]
  7. SMOKING PATCH [Concomitant]
     Dosage: 121 mg, UNK

REACTIONS (9)
  - Pneumonia [Unknown]
  - Cold sweat [Not Recovered/Not Resolved]
  - Musculoskeletal pain [Unknown]
  - Neck pain [Unknown]
  - Pain in extremity [Unknown]
  - Muscle spasms [Unknown]
  - Tremor [Unknown]
  - Dizziness [Not Recovered/Not Resolved]
  - Headache [Not Recovered/Not Resolved]
